FAERS Safety Report 4724031-7 (Version None)
Quarter: 2005Q3

REPORT INFORMATION
  Report Type: 
  Country: None (occurrence: None)
  Receive Date: 20050721
  Receipt Date: 20050701
  Transmission Date: 20060218
  Serious: Yes (Hospitalization)
  Sender: FDA-Public Use
  Company Number: GBT050502097

PATIENT
  Age: 72 Year
  Sex: Male
  Weight: 76 kg

DRUGS (9)
  1. ALIMTA [Suspect]
     Indication: NON-SMALL CELL LUNG CANCER RECURRENT
     Dosage: 1700 MG/1 OTHER
     Dates: start: 20050407
  2. FOLIC ACID [Concomitant]
  3. VITAMIN B-12 [Concomitant]
  4. ISOSORIDE MONONITRATE [Concomitant]
  5. ATORVASTATIN CALCIUM [Concomitant]
  6. DOCUSATE SODIUM [Concomitant]
  7. METOCLOPRAMIDE [Concomitant]
  8. FLUCONAZOLE [Concomitant]
  9. SENNA [Concomitant]

REACTIONS (15)
  - BLOOD LACTATE DEHYDROGENASE INCREASED [None]
  - BLOOD POTASSIUM DECREASED [None]
  - CONFUSIONAL STATE [None]
  - DECREASED APPETITE [None]
  - DISEASE PROGRESSION [None]
  - FATIGUE [None]
  - GENERAL PHYSICAL HEALTH DETERIORATION [None]
  - HAEMOGLOBIN DECREASED [None]
  - IMMUNOSUPPRESSION [None]
  - LEUKOPENIA [None]
  - LOWER RESPIRATORY TRACT INFECTION [None]
  - MALAISE [None]
  - NEUTROPENIA [None]
  - PAIN [None]
  - PLATELET COUNT DECREASED [None]
